FAERS Safety Report 15401663 (Version 1)
Quarter: 2018Q3

REPORT INFORMATION
  Report Type: Report from Study
  Country: CR (occurrence: CR)
  Receive Date: 20180919
  Receipt Date: 20180919
  Transmission Date: 20181010
  Serious: Yes (Other)
  Sender: FDA-Public Use
  Company Number: PHHY2018CR096903

PATIENT
  Age: 55 Year
  Sex: Female

DRUGS (1)
  1. EXFORGE HCT [Suspect]
     Active Substance: AMLODIPINE BESYLATE\HYDROCHLOROTHIAZIDE\VALSARTAN
     Indication: PRODUCT USED FOR UNKNOWN INDICATION
     Dosage: 1 DF, (10 MG AMLODIPINE /25 MG HYDROCHLOROTHIAZIDE/320 MG VALSARTAN)
     Route: 065

REACTIONS (5)
  - Bacterial infection [Unknown]
  - Pollakiuria [Unknown]
  - Blood pressure increased [Unknown]
  - Renal impairment [Unknown]
  - Blood pressure decreased [Unknown]
